FAERS Safety Report 7902334-2 (Version None)
Quarter: 2011Q4

REPORT INFORMATION
  Report Type: 
  Country: None (occurrence: None)
  Receive Date: 20111108
  Receipt Date: 20111026
  Transmission Date: 20120403
  Serious: Yes (Other)
  Sender: FDA-Public Use
  Company Number: IT-MYLANLABS-2011S1022532

PATIENT
  Age: 50 Year
  Sex: Male

DRUGS (2)
  1. PACLITAXEL [Concomitant]
     Indication: LUNG ADENOCARCINOMA
     Route: 065
  2. CARBOPLATIN [Suspect]
     Indication: LUNG ADENOCARCINOMA
     Dosage: 450MG
     Route: 065

REACTIONS (1)
  - KOUNIS SYNDROME [None]
